FAERS Safety Report 7065522-6 (Version None)
Quarter: 2010Q4

REPORT INFORMATION
  Report Type: 
  Country: None (occurrence: None)
  Receive Date: 20101027
  Receipt Date: 20101015
  Transmission Date: 20110411
  Serious: Yes (Hospitalization)
  Sender: FDA-Public Use
  Company Number: US-ROCHE-734348

PATIENT
  Sex: Female

DRUGS (2)
  1. HERCEPTIN [Suspect]
     Indication: BREAST CANCER STAGE III
     Route: 065
     Dates: start: 20090501, end: 20100501
  2. HERCEPTIN [Suspect]
     Route: 065

REACTIONS (3)
  - BILIARY NEOPLASM [None]
  - BLOOD BILIRUBIN INCREASED [None]
  - HEPATIC LESION [None]
